FAERS Safety Report 20206826 (Version 1)
Quarter: 2021Q4

REPORT INFORMATION
  Report Type: Spontaneous
  Country: GB (occurrence: GB)
  Receive Date: 20211220
  Receipt Date: 20211220
  Transmission Date: 20220303
  Serious: Yes (Other)
  Sender: FDA-Public Use
  Company Number: GB-ABBVIE-21K-167-4203116-00

PATIENT
  Age: 57 Year
  Sex: Female

DRUGS (2)
  1. VALPROATE SODIUM [Interacting]
     Active Substance: VALPROATE SODIUM
     Indication: Epilepsy
     Route: 065
  2. MEROPENEM [Interacting]
     Active Substance: MEROPENEM
     Indication: Pneumonia
     Dosage: DURATION 4 DAYS
     Route: 065

REACTIONS (3)
  - Seizure [Unknown]
  - Drug interaction [Unknown]
  - Diarrhoea [Unknown]
